FAERS Safety Report 5356426-5 (Version None)
Quarter: 2007Q2

REPORT INFORMATION
  Report Type: 
  Country: None (occurrence: None)
  Receive Date: 20070611
  Receipt Date: 20070530
  Transmission Date: 20071010
  Serious: Yes (Other)
  Sender: FDA-Public Use
  Company Number: 07H-066-0312685-00

PATIENT
  Age: 46 Day
  Sex: Male
  Weight: 0.99 kg

DRUGS (8)
  1. VANCOMYCIN HYDROCHLORIDE [Suspect]
     Indication: INFECTION
     Dosage: FOR 1 HR EVERY 8-24 HRS, INTRAVENOUS
     Route: 042
  2. VANCOMYCIN HYDROCHLORIDE [Suspect]
     Indication: STAPHYLOCOCCAL SEPSIS
     Dosage: FOR 1 HR EVERY 8-24 HRS, INTRAVENOUS
     Route: 042
  3. AMIKACIN [Suspect]
     Indication: INFECTION
     Dosage: FOR 30 MIN EVER 12-48 HRS, INTRAVENOUS
     Route: 042
  4. AMIKACIN [Suspect]
     Indication: STAPHYLOCOCCAL SEPSIS
     Dosage: FOR 30 MIN EVER 12-48 HRS, INTRAVENOUS
     Route: 042
  5. GENTAMICIN [Suspect]
     Indication: INFECTION
     Dosage: FOR 30 MIN EVERY 12-48 HRS, INTRAVENOUS
     Route: 042
  6. GENTAMICIN [Suspect]
     Indication: STAPHYLOCOCCAL SEPSIS
     Dosage: FOR 30 MIN EVERY 12-48 HRS, INTRAVENOUS
     Route: 042
  7. CEFTAZIDIME [Concomitant]
  8. FORMULA MILK (MILK SUBSTITUTES) [Concomitant]

REACTIONS (4)
  - DRUG INTERACTION [None]
  - ELECTROLYTE IMBALANCE [None]
  - NEPHROPATHY TOXIC [None]
  - RENAL TUBULAR DISORDER [None]
